FAERS Safety Report 4860248-9 (Version None)
Quarter: 2005Q4

REPORT INFORMATION
  Report Type: 
  Country: None (occurrence: None)
  Receive Date: 20051219
  Receipt Date: 20051208
  Transmission Date: 20060501
  Serious: Yes (Hospitalization)
  Sender: FDA-Public Use
  Company Number: US-JNJFOC-20051002869

PATIENT
  Sex: Male
  Weight: 106.14 kg

DRUGS (30)
  1. REMICADE [Suspect]
     Route: 042
  2. REMICADE [Suspect]
     Indication: RHEUMATOID ARTHRITIS
     Route: 042
  3. OXYCODONE [Concomitant]
  4. ACTONEL [Concomitant]
  5. METHOTREXATE [Concomitant]
  6. ARAVA [Concomitant]
  7. COREG [Concomitant]
  8. DIOVAN HCT [Concomitant]
  9. DIOVAN HCT [Concomitant]
     Dosage: 160/1.25
  10. LACTULOSE [Concomitant]
  11. MIRAPEX [Concomitant]
     Dosage: .5 MG 1/2 BID
  12. PREVACID [Concomitant]
  13. PROCARDIA [Concomitant]
  14. WELLBUTRIN XL [Concomitant]
  15. NORCO [Concomitant]
  16. NORCO [Concomitant]
     Dosage: PRN
  17. CLONAZEPAM [Concomitant]
     Dosage: PRN
  18. ZOCOR [Concomitant]
  19. FOLIC ACID [Concomitant]
  20. CARBIDOPA AND LEVODOPA [Concomitant]
  21. CARBIDOPA AND LEVODOPA [Concomitant]
  22. LASIX [Concomitant]
  23. ALTACE [Concomitant]
  24. POTASSIUM CHLORIDE [Concomitant]
  25. SPIRONOLACTONE [Concomitant]
  26. ASPIRIN [Concomitant]
  27. FLEXERIL [Concomitant]
  28. MULTIVIT [Concomitant]
  29. COLACE [Concomitant]
  30. SENNA [Concomitant]

REACTIONS (2)
  - ARTERIAL OCCLUSIVE DISEASE [None]
  - CARDIAC FAILURE CONGESTIVE [None]
